FAERS Safety Report 5077653-0 (Version None)
Quarter: 2006Q3

REPORT INFORMATION
  Report Type: 
  Country: None (occurrence: None)
  Receive Date: 20060810
  Receipt Date: 20060509
  Transmission Date: 20061208
  Serious: Yes (Other)
  Sender: FDA-Public Use
  Company Number: 2006UW09179

PATIENT
  Age: 6940 Day
  Sex: Male
  Weight: 59.1 kg

DRUGS (4)
  1. SEROQUEL [Suspect]
     Indication: BIPOLAR DISORDER
     Route: 048
     Dates: start: 20060331, end: 20060505
  2. SEROQUEL [Suspect]
     Indication: DEPRESSION
     Route: 048
     Dates: start: 20060331, end: 20060505
  3. SEROQUEL [Suspect]
     Indication: INSOMNIA
     Route: 048
     Dates: start: 20060331, end: 20060505
  4. WELLBUTRIN [Concomitant]
     Indication: BIPOLAR DISORDER
     Route: 048
     Dates: start: 20060331

REACTIONS (1)
  - ROAD TRAFFIC ACCIDENT [None]
